FAERS Safety Report 8505515-2 (Version None)
Quarter: 2012Q3

REPORT INFORMATION
  Report Type: 
  Country: None (occurrence: None)
  Receive Date: 20120703
  Receipt Date: 20120622
  Transmission Date: 20120928
  Serious: Yes (Hospitalization)
  Sender: FDA-Public Use
  Company Number: 2012SP035292

PATIENT
  Sex: Female

DRUGS (3)
  1. SEROQUEL [Concomitant]
  2. REMERON [Suspect]
     Indication: DEPRESSION
     Dosage: 15 MG;HS;PO ; 30 MG;HS;PO
     Route: 048
     Dates: start: 20120301, end: 20120401
  3. REMERON [Suspect]
     Indication: DEPRESSION
     Dosage: 15 MG;HS;PO ; 30 MG;HS;PO
     Route: 048
     Dates: start: 20120501, end: 20120601

REACTIONS (1)
  - BLOOD CREATINE PHOSPHOKINASE INCREASED [None]
